FAERS Safety Report 14349148 (Version 2)
Quarter: 2018Q1

REPORT INFORMATION
  Report Type: Spontaneous
  Country: US (occurrence: US)
  Receive Date: 20180104
  Receipt Date: 20180123
  Transmission Date: 20180509
  Serious: Yes (Hospitalization)
  Sender: FDA-Public Use
  Company Number: US-WEST-WARD PHARMACEUTICALS CORP.-US-H14001-17-05301

PATIENT
  Age: 6 Month
  Sex: Male

DRUGS (1)
  1. METHAMPHETAMINE [Suspect]
     Active Substance: METHAMPHETAMINE
     Indication: PRODUCT USED FOR UNKNOWN INDICATION
     Route: 065

REACTIONS (10)
  - Tachycardia [Recovered/Resolved]
  - Mydriasis [Recovered/Resolved]
  - Hypertonia [Recovered/Resolved]
  - Eye movement disorder [Recovered/Resolved]
  - Restlessness [Recovered/Resolved]
  - Depressed mood [Recovered/Resolved]
  - Toxicity to various agents [Recovered/Resolved]
  - Dyskinesia [Recovered/Resolved]
  - Irritability [Recovered/Resolved]
  - Agitation [Recovered/Resolved]
